FAERS Safety Report 24466457 (Version 1)
Quarter: 2024Q4

REPORT INFORMATION
  Report Type: Spontaneous
  Country: US (occurrence: US)
  Receive Date: 20241018
  Receipt Date: 20241018
  Transmission Date: 20250115
  Serious: No
  Sender: ROCHE
  Company Number: US-ROCHE-3539022

PATIENT
  Sex: Female

DRUGS (34)
  1. XOLAIR [Suspect]
     Active Substance: OMALIZUMAB
     Indication: Asthma
     Route: 058
  2. XOLAIR [Suspect]
     Active Substance: OMALIZUMAB
  3. CLARITHROMYCIN [Concomitant]
     Active Substance: CLARITHROMYCIN
  4. ETHAMBUTOL HYDROCHLORIDE [Concomitant]
     Active Substance: ETHAMBUTOL HYDROCHLORIDE
  5. RIFAMPIN [Concomitant]
     Active Substance: RIFAMPIN
  6. BUTALBITAL [Concomitant]
     Active Substance: BUTALBITAL
  7. CHOLESTYRAMINE [Concomitant]
     Active Substance: CHOLESTYRAMINE
  8. CLINDAMYCIN [Concomitant]
     Active Substance: CLINDAMYCIN
  9. DIAZEPAM [Concomitant]
     Active Substance: DIAZEPAM
  10. DIPHENOXYLATE [Concomitant]
     Active Substance: DIPHENOXYLATE
  11. DONEPEZIL [Concomitant]
     Active Substance: DONEPEZIL
  12. DOXYCYCLINE [Concomitant]
     Active Substance: DOXYCYCLINE
  13. ESOMEPRAZOLE [Concomitant]
     Active Substance: ESOMEPRAZOLE
  14. FLUCONAZOLE [Concomitant]
     Active Substance: FLUCONAZOLE
  15. FLUTICASONE [Concomitant]
     Active Substance: FLUTICASONE
  16. IPRATROPIUM [Concomitant]
     Active Substance: IPRATROPIUM
  17. IPRATROPIUM [Concomitant]
     Active Substance: IPRATROPIUM
  18. LEVOFLOXACIN [Concomitant]
     Active Substance: LEVOFLOXACIN
  19. MELOXICAM [Concomitant]
     Active Substance: MELOXICAM
  20. METHYLPREDNISOLONE [Concomitant]
     Active Substance: METHYLPREDNISOLONE
  21. MINOCYCLINE [Concomitant]
     Active Substance: MINOCYCLINE HYDROCHLORIDE
  22. NITROGLYCERIN [Concomitant]
     Active Substance: NITROGLYCERIN
  23. NYSTATIN [Concomitant]
     Active Substance: NYSTATIN
  24. OMEPRAZOLE [Concomitant]
     Active Substance: OMEPRAZOLE
  25. PERCOCET [Concomitant]
     Active Substance: ACETAMINOPHEN\OXYCODONE HYDROCHLORIDE
  26. HIGH DENSITY POLYETHYLENE [Concomitant]
     Active Substance: HIGH DENSITY POLYETHYLENE
  27. PREDNISONE [Concomitant]
     Active Substance: PREDNISONE
  28. PREVALITE [Concomitant]
     Active Substance: CHOLESTYRAMINE
  29. SIMVASTATIN [Concomitant]
     Active Substance: SIMVASTATIN
  30. SYMBICORT [Concomitant]
     Active Substance: BUDESONIDE\FORMOTEROL FUMARATE DIHYDRATE
  31. TRAZODONE [Concomitant]
     Active Substance: TRAZODONE HYDROCHLORIDE
  32. TYLENOL [Concomitant]
     Active Substance: ACETAMINOPHEN
  33. VENTOLIN [Concomitant]
     Active Substance: ALBUTEROL SULFATE
  34. VITAMIN D3 [Concomitant]
     Active Substance: CHOLECALCIFEROL

REACTIONS (3)
  - Middle insomnia [Not Recovered/Not Resolved]
  - Dyspnoea [Not Recovered/Not Resolved]
  - Choking sensation [Not Recovered/Not Resolved]
